FAERS Safety Report 24729903 (Version 1)
Quarter: 2024Q4

REPORT INFORMATION
  Report Type: Spontaneous
  Country: US (occurrence: US)
  Receive Date: 20241213
  Receipt Date: 20241213
  Transmission Date: 20250115
  Serious: No
  Sender: ABBVIE
  Company Number: US-ABBVIE-6044211

PATIENT

DRUGS (1)
  1. REFRESH RELIEVA PF XTRA [Suspect]
     Active Substance: CARBOXYMETHYLCELLULOSE SODIUM\GLYCERIN
     Indication: Dry eye
     Dosage: CMC 0.5% AND GLYCERIN 0.9% MDPF (MULTI-DOSE PRESERVATIVE?FREE)
     Route: 047

REACTIONS (1)
  - Drug ineffective [Not Recovered/Not Resolved]
